FAERS Safety Report 7091003-X (Version None)
Quarter: 2010Q4

REPORT INFORMATION
  Report Type: 
  Country: None (occurrence: None)
  Receive Date: 20101105
  Receipt Date: 20101105
  Transmission Date: 20110411
  Serious: Yes (Other)
  Sender: FDA-Public Use
  Company Number: None

PATIENT
  Sex: Male
  Weight: 63.1 kg

DRUGS (5)
  1. ADALIMUMAB 40 MG/INJECTOR HUMIRA/ABBOT LABORATORIES [Suspect]
     Indication: COLITIS ULCERATIVE
     Dosage: 40 MG Q 2 WEEKS SQ
     Route: 058
     Dates: start: 20080801, end: 20100209
  2. MERCAPTOPURINE [Concomitant]
  3. ASACOL [Concomitant]
  4. INFLIXIMAB [Concomitant]
  5. TURMERIC SUPPLEMENT [Concomitant]

REACTIONS (3)
  - HODGKIN'S DISEASE [None]
  - MALAISE [None]
  - PYREXIA [None]
